FAERS Safety Report 17913272 (Version 2)
Quarter: 2020Q4

REPORT INFORMATION
  Report Type: Spontaneous
  Country: JP (occurrence: JP)
  Receive Date: 20200618
  Receipt Date: 20201023
  Transmission Date: 20210113
  Serious: Yes (Life-Threatening, Hospitalization)
  Sender: FDA-Public Use
  Company Number: JP-SEATTLE GENETICS-2020SGN02662

PATIENT
  Age: 39 Year
  Sex: Female
  Weight: 39 kg

DRUGS (7)
  1. NEORESTAR [Concomitant]
     Active Substance: CHLORPHENIRAMINE MALEATE
     Indication: PROPHYLAXIS
     Dosage: 500 MILLIGRAM, QD
     Route: 041
     Dates: start: 20200604, end: 20200604
  2. VINBLASTINE SULFATE. [Suspect]
     Active Substance: VINBLASTINE SULFATE
     Indication: PRODUCT USED FOR UNKNOWN INDICATION
     Dosage: UNK
     Route: 065
  3. DACARBAZINE. [Suspect]
     Active Substance: DACARBAZINE
     Indication: HODGKIN^S DISEASE
     Dosage: 190 MILLIGRAM, QD
     Route: 041
     Dates: start: 20200604, end: 20200604
  4. EXAL (VINBLASTINE SULFATE) [Suspect]
     Active Substance: VINBLASTINE SULFATE
     Indication: HODGKIN^S DISEASE
     Dosage: 8 MILLIGRAM, QD
     Route: 042
     Dates: start: 20200604, end: 20200604
  5. G LASTA [Concomitant]
     Active Substance: PEGFILGRASTIM
     Indication: PROPHYLAXIS
     Dosage: 3.6 MILLIGRAM, QD
     Route: 058
     Dates: start: 20200606, end: 20200606
  6. ADCETRIS [Suspect]
     Active Substance: BRENTUXIMAB VEDOTIN
     Indication: HODGKIN^S DISEASE
     Dosage: 50 MILLIGRAM, QD
     Route: 041
     Dates: start: 20200604, end: 20200604
  7. DOXORUBICIN HYDROCHLORIDE. [Suspect]
     Active Substance: DOXORUBICIN HYDROCHLORIDE
     Indication: HODGKIN^S DISEASE
     Dosage: 30 MILLIGRAM, QD
     Route: 042
     Dates: start: 20200604, end: 20200604

REACTIONS (5)
  - Dyspnoea [Recovered/Resolved]
  - Inappropriate antidiuretic hormone secretion [Recovered/Resolved]
  - Oral pain [Recovered/Resolved]
  - Tremor [Recovering/Resolving]
  - Hypoaesthesia [Recovered/Resolved]

NARRATIVE: CASE EVENT DATE: 20200606
